FAERS Safety Report 20368738 (Version 1)
Quarter: 2022Q1

REPORT INFORMATION
  Report Type: Spontaneous
  Country: JO (occurrence: None)
  Receive Date: 20220124
  Receipt Date: 20220124
  Transmission Date: 20220424
  Serious: Yes (Other)
  Sender: FDA-Public Use
  Company Number: JO-ROCHE-3004722

PATIENT

DRUGS (15)
  1. RITUXIMAB [Suspect]
     Active Substance: RITUXIMAB
     Indication: Follicular lymphoma
     Dosage: RCHOP
     Route: 065
     Dates: start: 20160329, end: 20160809
  2. RITUXIMAB [Suspect]
     Active Substance: RITUXIMAB
     Dosage: RCVP
     Route: 065
     Dates: start: 20210621, end: 20210915
  3. RITUXIMAB [Suspect]
     Active Substance: RITUXIMAB
     Dosage: FCR
     Route: 065
     Dates: start: 20210919, end: 20211010
  4. RITUXIMAB [Suspect]
     Active Substance: RITUXIMAB
     Dosage: RICE
     Route: 065
     Dates: start: 20211125
  5. CYCLOPHOSPHAMIDE [Concomitant]
     Active Substance: CYCLOPHOSPHAMIDE
     Indication: Follicular lymphoma
     Dosage: RCHOP
     Dates: start: 20160329, end: 20160809
  6. CYCLOPHOSPHAMIDE [Concomitant]
     Active Substance: CYCLOPHOSPHAMIDE
     Dosage: RCVP
     Dates: start: 20210621, end: 20210915
  7. DOXORUBICIN [Concomitant]
     Active Substance: DOXORUBICIN
     Indication: Follicular lymphoma
     Dates: start: 20160329, end: 20160809
  8. VINCRISTINE [Concomitant]
     Active Substance: VINCRISTINE
     Indication: Follicular lymphoma
     Dosage: RCHOP
     Dates: start: 20160329, end: 20160809
  9. VINCRISTINE [Concomitant]
     Active Substance: VINCRISTINE
     Dosage: RCVP
     Dates: start: 20210621, end: 20210915
  10. PREDNISOLONE [Concomitant]
     Active Substance: PREDNISOLONE
     Indication: Follicular lymphoma
     Dosage: RCHOP
     Dates: start: 20160329, end: 20160809
  11. PREDNISOLONE [Concomitant]
     Active Substance: PREDNISOLONE
     Dosage: RCVP
     Dates: start: 20210621, end: 20210915
  12. FLUDARABINE [Concomitant]
     Active Substance: FLUDARABINE PHOSPHATE
     Indication: Follicular lymphoma
     Dosage: FCR
     Dates: start: 20210919, end: 20211010
  13. IFOSFAMIDE [Concomitant]
     Active Substance: IFOSFAMIDE
     Indication: Follicular lymphoma
     Dosage: RICE
     Dates: start: 20211125
  14. CARBOPLATIN [Concomitant]
     Active Substance: CARBOPLATIN
     Indication: Follicular lymphoma
     Dosage: RICE
     Dates: start: 20211125
  15. ETOPOSIDE [Concomitant]
     Active Substance: ETOPOSIDE
     Indication: Follicular lymphoma
     Dosage: RICE
     Dates: start: 20211125

REACTIONS (2)
  - Disease progression [Unknown]
  - Drug ineffective [Unknown]

NARRATIVE: CASE EVENT DATE: 20210501
